FAERS Safety Report 9555057 (Version 1)
Quarter: 2013Q3

REPORT INFORMATION
  Report Type: Spontaneous
  Country: US (occurrence: US)
  Receive Date: 20130926
  Receipt Date: 20130926
  Transmission Date: 20140515
  Serious: Yes (Other)
  Sender: FDA-Public Use
  Company Number: US-AMGEN-USASP2013066594

PATIENT
  Age: 62 Year
  Sex: Female

DRUGS (19)
  1. PROLIA [Suspect]
     Indication: OSTEOPOROSIS
     Dosage: UNK
     Route: 065
     Dates: start: 20130823
  2. LYRICA [Concomitant]
     Dosage: 200 MG, BID
  3. FIORICET [Concomitant]
     Indication: MIGRAINE
     Dosage: UNK UNK, QD
  4. SYNTHROID [Concomitant]
     Dosage: 112 MUG, QD
  5. PROPRANOLOL [Concomitant]
     Dosage: 10 MG, BID
  6. BACLOFEN [Concomitant]
     Dosage: 10 MG, BID
  7. XANAX [Concomitant]
     Dosage: 1 TAB AT 12PM,2PM, 1/2 TABLET AT HS
  8. ZOLOFT [Concomitant]
     Dosage: 50 MG, 1 QD
  9. DIFLUCAN [Concomitant]
     Indication: FUNGAL INFECTION
     Dosage: 100 MG, AS NECESSARY
  10. VITAMINS                           /00067501/ [Concomitant]
  11. PYRIDOSTIGMINE [Concomitant]
     Dosage: 60 MG, BID
  12. MESTINON [Concomitant]
     Dosage: 180 MG, 1 QD
  13. FENTANYL [Concomitant]
     Indication: BACK PAIN
     Dosage: PATCH EVERY 24 HOURS
     Dates: start: 2006
  14. FENTANYL [Concomitant]
     Indication: PAIN
  15. NORCO [Concomitant]
     Indication: BACK PAIN
     Dosage: UNK UNK, TID AS NEEDED
     Dates: start: 2006
  16. NORCO [Concomitant]
     Indication: PAIN
  17. SKELAXIN                           /00611501/ [Concomitant]
     Dosage: 300 MG, TID
     Dates: start: 2006
  18. PREDNISONE                         /00044702/ [Concomitant]
     Indication: BACK PAIN
     Dosage: 10 MG, QD
     Dates: start: 2006
  19. PREDNISONE                         /00044702/ [Concomitant]
     Indication: PAIN

REACTIONS (6)
  - Stress fracture [Unknown]
  - Pelvic pain [Unknown]
  - Swelling [Recovered/Resolved]
  - Bone pain [Unknown]
  - Arthralgia [Unknown]
  - Mobility decreased [Unknown]
